FAERS Safety Report 4713578-5 (Version None)
Quarter: 2005Q3

REPORT INFORMATION
  Report Type: 
  Country: None (occurrence: None)
  Receive Date: 20050711
  Receipt Date: 20050629
  Transmission Date: 20060218
  Serious: Yes (Death)
  Sender: FDA-Public Use
  Company Number: 200510309BYL

PATIENT
  Age: 60 Year
  Sex: Female

DRUGS (3)
  1. ASPIRIN [Suspect]
     Dosage: ORAL
     Route: 048
     Dates: start: 20031111
  2. THIAMAZOLE [Concomitant]
  3. SARPOGRELATE HYDROCHLORIDE [Concomitant]

REACTIONS (9)
  - BASEDOW'S DISEASE [None]
  - CARDIO-RESPIRATORY ARREST [None]
  - COMPUTERISED TOMOGRAM ABNORMAL [None]
  - DISEASE RECURRENCE [None]
  - LUNG DISORDER [None]
  - MALAISE [None]
  - PRURITUS GENERALISED [None]
  - PULMONARY ALVEOLAR HAEMORRHAGE [None]
  - VASCULITIS [None]
